FAERS Safety Report 19810204 (Version 1)
Quarter: 2021Q3

REPORT INFORMATION
  Report Type: Spontaneous
  Country: US (occurrence: US)
  Receive Date: 20210909
  Receipt Date: 20210909
  Transmission Date: 20211014
  Serious: Yes (Death)
  Sender: FDA-Public Use
  Company Number: None

PATIENT
  Age: 64 Year
  Sex: Male

DRUGS (1)
  1. ABIRATERONE ACETATE. [Suspect]
     Active Substance: ABIRATERONE ACETATE
     Indication: B-CELL LYMPHOMA
     Route: 048
     Dates: start: 20210323, end: 20210818

REACTIONS (1)
  - Death [None]

NARRATIVE: CASE EVENT DATE: 20210818
